FAERS Safety Report 4514796-1 (Version None)
Quarter: 2005Q1

REPORT INFORMATION
  Report Type: 
  Country: None (occurrence: None)
  Receive Date: 20041112
  Receipt Date: 20041112
  Transmission Date: 20050727
  Serious: Yes (Hospitalization)
  Sender: FDA-Public Use
  Company Number: None

PATIENT
  Age: 41 Year
  Sex: Male

DRUGS (1)
  1. VIAGRA [Suspect]

REACTIONS (5)
  - CHEST PAIN [None]
  - CHILLS [None]
  - FEELING COLD [None]
  - MALAISE [None]
  - PALPITATIONS [None]
